FAERS Safety Report 10522349 (Version 5)
Quarter: 2015Q1

REPORT INFORMATION
  Report Type: Spontaneous
  Country: US (occurrence: US)
  Receive Date: 20141016
  Receipt Date: 20150113
  Transmission Date: 20150720
  Serious: Yes (Hospitalization)
  Sender: FDA-Public Use
  Company Number: US-ACTELION-A-US2014-106459

PATIENT
  Age: 70 Year
  Sex: Female

DRUGS (3)
  1. VELETRI [Suspect]
     Active Substance: EPOPROSTENOL
     Dosage: 60 NG/KG, UNK
     Route: 042
  2. REVATIO [Concomitant]
     Active Substance: SILDENAFIL CITRATE
  3. VELETRI [Suspect]
     Active Substance: EPOPROSTENOL
     Indication: PULMONARY ARTERIAL HYPERTENSION
     Dosage: 52 NG/KG, PER MIN
     Route: 048
     Dates: start: 20110825

REACTIONS (11)
  - International normalised ratio increased [Unknown]
  - Acute kidney injury [Unknown]
  - Fall [Unknown]
  - Spinal fracture [Unknown]
  - Loss of consciousness [Unknown]
  - Haemorrhage [Unknown]
  - Pneumonia [Unknown]
  - Hyponatraemia [Unknown]
  - Asthenia [Unknown]
  - Oxygen saturation decreased [Unknown]
  - Lethargy [Unknown]

NARRATIVE: CASE EVENT DATE: 20141004
